FAERS Safety Report 12840549 (Version 2)
Quarter: 2016Q4

REPORT INFORMATION
  Report Type: Spontaneous
  Country: US (occurrence: US)
  Receive Date: 20161012
  Receipt Date: 20161114
  Transmission Date: 20170207
  Serious: No
  Sender: FDA-Public Use
  Company Number: US-SHIRE-US201613710

PATIENT
  Sex: Male
  Weight: 76.19 kg

DRUGS (1)
  1. XIIDRA [Suspect]
     Active Substance: LIFITEGRAST
     Indication: DRY EYE
     Dosage: 1 GTT, 2X/DAY:BID (1 DROP IN EACH EYE TWICE A DAY)
     Route: 047

REACTIONS (2)
  - Product quality issue [Unknown]
  - Accidental overdose [Unknown]
